FAERS Safety Report 15075581 (Version 5)
Quarter: 2019Q1

REPORT INFORMATION
  Report Type: Spontaneous
  Country: ES (occurrence: ES)
  Receive Date: 20180627
  Receipt Date: 20190103
  Transmission Date: 20190417
  Serious: Yes (Other)
  Sender: FDA-Public Use
  Company Number: ES-PFIZER INC-2018252082

PATIENT
  Sex: Male

DRUGS (3)
  1. QUETIAPINE. [Interacting]
     Active Substance: QUETIAPINE
     Dosage: UNK, HIGH DOSES
  2. VALPROIC ACID. [Interacting]
     Active Substance: VALPROIC ACID
     Dosage: UNK, HIGH DOSES
  3. LORAZEPAM. [Suspect]
     Active Substance: LORAZEPAM
     Dosage: UNK

REACTIONS (4)
  - Depressed level of consciousness [Unknown]
  - Dehydration [Unknown]
  - Coma [Unknown]
  - Drug interaction [Unknown]
